FAERS Safety Report 8815230 (Version 2)
Quarter: 2012Q4

REPORT INFORMATION
  Report Type: 
  Country: US (occurrence: US)
  Receive Date: 20120928
  Receipt Date: 20121105
  Transmission Date: 20130627
  Serious: Yes (Other)
  Sender: FDA-Public Use
  Company Number: US-ASTRAZENECA-2012SE72973

PATIENT
  Age: 67 Year
  Sex: Female
  Weight: 50.8 kg

DRUGS (6)
  1. SYMBICORT [Suspect]
     Indication: CHRONIC OBSTRUCTIVE PULMONARY DISEASE
     Dosage: 160/ 4.5 MCG, 2 PUFFS, BID
     Route: 055
     Dates: start: 20120829
  2. SPIRIVA [Concomitant]
     Indication: CHRONIC OBSTRUCTIVE PULMONARY DISEASE
     Route: 055
  3. VENTOLIN [Concomitant]
     Indication: EMERGENCY CARE
     Route: 055
  4. ESTRADIOL PATCH [Concomitant]
     Indication: HORMONE REPLACEMENT THERAPY
     Route: 061
     Dates: start: 1985
  5. PRILOSEC OTC [Concomitant]
     Indication: BARRETT^S OESOPHAGUS
     Route: 048
     Dates: start: 2010
  6. PROZAC [Concomitant]
     Indication: DEPRESSION
     Route: 048

REACTIONS (6)
  - Intervertebral disc protrusion [Unknown]
  - Dyspnoea [Unknown]
  - Visual impairment [Unknown]
  - Raynaud^s phenomenon [Unknown]
  - Emotional distress [Unknown]
  - Circumstance or information capable of leading to medication error [Unknown]
